FAERS Safety Report 10445754 (Version 1)
Quarter: 2014Q3

REPORT INFORMATION
  Report Type: Spontaneous
  Country: US (occurrence: US)
  Receive Date: 20140910
  Receipt Date: 20140910
  Transmission Date: 20150326
  Serious: No
  Sender: FDA-Public Use
  Company Number: US-TEVA-507766USA

PATIENT
  Age: 24 Year
  Sex: Female
  Weight: 63.56 kg

DRUGS (1)
  1. PARAGARD T380A [Suspect]
     Active Substance: COPPER
     Indication: CONTRACEPTION
     Route: 015
     Dates: start: 201110

REACTIONS (12)
  - Cervix disorder [Not Recovered/Not Resolved]
  - Skin discolouration [Not Recovered/Not Resolved]
  - Adverse event [Unknown]
  - Breast disorder [Not Recovered/Not Resolved]
  - Ovulation delayed [Not Recovered/Not Resolved]
  - Dysmenorrhoea [Recovered/Resolved]
  - Fungal infection [Recovered/Resolved]
  - Vaginal discharge [Not Recovered/Not Resolved]
  - Menstruation delayed [Not Recovered/Not Resolved]
  - Breast discharge [Not Recovered/Not Resolved]
  - Breast enlargement [Not Recovered/Not Resolved]
  - Menorrhagia [Recovered/Resolved]

NARRATIVE: CASE EVENT DATE: 201408
